FAERS Safety Report 6816272-X (Version None)
Quarter: 2010Q3

REPORT INFORMATION
  Report Type: 
  Country: None (occurrence: None)
  Receive Date: 20100705
  Receipt Date: 20100629
  Transmission Date: 20110219
  Serious: Yes (Hospitalization)
  Sender: FDA-Public Use
  Company Number: JP-BAYER-201012887BYL

PATIENT
  Age: 81 Year
  Sex: Male
  Weight: 54 kg

DRUGS (11)
  1. NEXAVAR [Suspect]
     Indication: HEPATIC NEOPLASM MALIGNANT
     Dosage: TOTAL DAILY DOSE: 400 MG  UNIT DOSE: 200 MG
     Route: 048
     Dates: start: 20100526, end: 20100531
  2. NEXAVAR [Suspect]
     Dosage: UNIT DOSE: 200 MG
     Route: 048
     Dates: start: 20100615, end: 20100615
  3. LOXONIN [Suspect]
     Indication: PYREXIA
     Dosage: UNIT DOSE: 1 DF
     Route: 048
     Dates: start: 20100530
  4. TETRAMIDE [Concomitant]
     Indication: DEPRESSION
     Dosage: UNIT DOSE: 10 MG
     Route: 048
  5. CONIEL [Concomitant]
     Indication: HYPERTENSION
     Dosage: UNIT DOSE: 4 MG
     Route: 048
  6. MUCOSTA [Concomitant]
     Indication: GASTRITIS
     Dosage: UNIT DOSE: 100 MG
     Route: 048
  7. ZYLORIC [Concomitant]
     Indication: HYPERURICAEMIA
     Dosage: UNIT DOSE: 100 MG
     Route: 048
  8. COMELIAN [Concomitant]
     Indication: RENAL IMPAIRMENT
     Dosage: UNIT DOSE: 50 MG
     Route: 048
  9. TAKEPRON [Concomitant]
     Indication: REFLUX OESOPHAGITIS
     Dosage: UNIT DOSE: 15 MG
     Route: 048
  10. DIAZEPAM [Concomitant]
     Indication: DEPRESSION
     Dosage: UNIT DOSE: 2 MG
     Route: 048
  11. FRANDOL [Concomitant]
     Indication: ANGINA PECTORIS
     Dosage: UNIT DOSE: 40 MG
     Route: 062
     Dates: start: 20091218

REACTIONS (5)
  - BLOOD PRESSURE DECREASED [None]
  - C-REACTIVE PROTEIN INCREASED [None]
  - PYREXIA [None]
  - RASH [None]
  - RENAL IMPAIRMENT [None]
